FAERS Safety Report 6258125-4 (Version None)
Quarter: 2009Q3

REPORT INFORMATION
  Report Type: 
  Country: None (occurrence: None)
  Receive Date: 20090702
  Receipt Date: 20090629
  Transmission Date: 20100115
  Serious: Yes (Hospitalization)
  Sender: FDA-Public Use
  Company Number: 2009SP014280

PATIENT
  Age: 58 Year
  Sex: Female

DRUGS (3)
  1. NOXAFIL [Suspect]
     Indication: ASPERGILLOSIS
     Dosage: 200 MG; QID; PO
     Route: 048
     Dates: start: 20090219, end: 20090330
  2. CANCIDAS [Concomitant]
  3. TAVANIC [Concomitant]

REACTIONS (2)
  - LEUKOPENIA [None]
  - NEUTROPENIA [None]
